FAERS Safety Report 9916904 (Version 2)
Quarter: 2014Q1

REPORT INFORMATION
  Report Type: Spontaneous
  Country: US (occurrence: US)
  Receive Date: 20140221
  Receipt Date: 20140221
  Transmission Date: 20141002
  Serious: Yes (Disabling, Other)
  Sender: FDA-Public Use
  Company Number: US-GE HEALTHCARE MEDICAL DIAGNOSTICS-OSCN-PR-0811S-0607

PATIENT
  Age: 71 Year
  Sex: Female

DRUGS (44)
  1. OMNISCAN [Suspect]
     Indication: ANGIOPLASTY
     Route: 042
     Dates: start: 20040503, end: 20040503
  2. MAGNEVIST [Suspect]
     Indication: HYPERTENSION
     Route: 042
     Dates: start: 20001226, end: 20001226
  3. MAGNEVIST [Suspect]
     Indication: ABDOMINAL PAIN UPPER
     Route: 042
     Dates: start: 20010925, end: 20010925
  4. MAGNEVIST [Suspect]
     Indication: RENAL ARTERY STENOSIS
     Route: 042
     Dates: start: 20040428, end: 20040428
  5. MAGNEVIST [Suspect]
     Indication: STENT PLACEMENT
     Route: 042
     Dates: start: 20041031, end: 20041031
  6. OPTIMARK [Suspect]
     Indication: PRODUCT USED FOR UNKNOWN INDICATION
     Route: 042
     Dates: start: 20030715, end: 20030715
  7. OPTIMARK [Suspect]
     Route: 042
     Dates: start: 20040531, end: 20040531
  8. OPTIMARK [Suspect]
     Route: 042
     Dates: start: 20040831, end: 20040831
  9. NEURONTIN [Concomitant]
     Indication: PRODUCT USED FOR UNKNOWN INDICATION
  10. HYDRALAZINE [Concomitant]
     Indication: PRODUCT USED FOR UNKNOWN INDICATION
  11. MIRALAX [Concomitant]
     Indication: PRODUCT USED FOR UNKNOWN INDICATION
  12. HYDROCODONE [Concomitant]
     Indication: PRODUCT USED FOR UNKNOWN INDICATION
  13. ZOLOFT [Concomitant]
     Indication: PRODUCT USED FOR UNKNOWN INDICATION
     Route: 048
  14. AVAPRO [Concomitant]
     Indication: PRODUCT USED FOR UNKNOWN INDICATION
     Route: 048
  15. COZAAR [Concomitant]
     Indication: PRODUCT USED FOR UNKNOWN INDICATION
  16. FOSRENOL [Concomitant]
     Indication: PRODUCT USED FOR UNKNOWN INDICATION
  17. SERTRALINE [Concomitant]
     Indication: PRODUCT USED FOR UNKNOWN INDICATION
  18. ZIAC [Concomitant]
     Indication: HYPERTENSION
     Dates: start: 1990
  19. LISINOPRIL [Concomitant]
     Indication: HYPERTENSION
     Dates: start: 1998
  20. IRON [Concomitant]
     Indication: PRODUCT USED FOR UNKNOWN INDICATION
  21. AGRYLIN [Concomitant]
     Indication: PLATELET COUNT INCREASED
     Dates: start: 2003, end: 2004
  22. BENICAR [Concomitant]
     Indication: PRODUCT USED FOR UNKNOWN INDICATION
  23. HYDROCHLOROTHIAZIDE [Concomitant]
     Indication: PRODUCT USED FOR UNKNOWN INDICATION
  24. NORVASC [Concomitant]
     Indication: PRODUCT USED FOR UNKNOWN INDICATION
  25. TOPROL [Concomitant]
     Indication: PRODUCT USED FOR UNKNOWN INDICATION
  26. HYDROXYUREA [Concomitant]
     Indication: PLATELET COUNT INCREASED
  27. VERAPAMIL [Concomitant]
     Indication: PRODUCT USED FOR UNKNOWN INDICATION
     Route: 048
  28. EDECRIN [Concomitant]
     Indication: PRODUCT USED FOR UNKNOWN INDICATION
     Route: 048
  29. AGGRENOX [Concomitant]
     Indication: PRODUCT USED FOR UNKNOWN INDICATION
  30. FLEXERIL [Concomitant]
     Indication: PRODUCT USED FOR UNKNOWN INDICATION
  31. XANAX [Concomitant]
     Indication: PRODUCT USED FOR UNKNOWN INDICATION
     Route: 048
  32. MULTIVITAMIN [Concomitant]
     Indication: PRODUCT USED FOR UNKNOWN INDICATION
  33. DIATX [Concomitant]
     Indication: PRODUCT USED FOR UNKNOWN INDICATION
  34. FOSRENOL [Concomitant]
     Indication: PRODUCT USED FOR UNKNOWN INDICATION
     Dates: start: 200709
  35. PROCRIT [Concomitant]
     Indication: PRODUCT USED FOR UNKNOWN INDICATION
  36. IMDUR [Concomitant]
     Indication: PRODUCT USED FOR UNKNOWN INDICATION
  37. WELLBUTRIN SR [Concomitant]
     Indication: PRODUCT USED FOR UNKNOWN INDICATION
     Route: 048
  38. PROTONIX [Concomitant]
     Indication: PRODUCT USED FOR UNKNOWN INDICATION
     Route: 048
  39. ZEMPLAR [Concomitant]
     Indication: PRODUCT USED FOR UNKNOWN INDICATION
     Route: 048
  40. INSPRA [Concomitant]
     Indication: PRODUCT USED FOR UNKNOWN INDICATION
     Route: 048
  41. ARANESP [Concomitant]
     Indication: PRODUCT USED FOR UNKNOWN INDICATION
     Dates: end: 200606
  42. NEUPOGEN [Concomitant]
     Indication: PRODUCT USED FOR UNKNOWN INDICATION
     Dates: end: 200606
  43. FERRLECIT [Concomitant]
     Indication: PRODUCT USED FOR UNKNOWN INDICATION
  44. VISIPAQUE [Concomitant]
     Indication: PRODUCT USED FOR UNKNOWN INDICATION

REACTIONS (1)
  - Nephrogenic systemic fibrosis [Not Recovered/Not Resolved]
